FAERS Safety Report 18246165 (Version 1)
Quarter: 2020Q3

REPORT INFORMATION
  Report Type: Spontaneous
  Country: US (occurrence: US)
  Receive Date: 20200909
  Receipt Date: 20200909
  Transmission Date: 20201103
  Serious: Yes (Hospitalization)
  Sender: FDA-Public Use
  Company Number: None

PATIENT
  Sex: Male
  Weight: 59.3 kg

DRUGS (3)
  1. LEUCOVORIN CALCIUM. [Suspect]
     Active Substance: LEUCOVORIN CALCIUM
     Dates: end: 20200813
  2. 5?FLUOROURACIL (5?FU) [Suspect]
     Active Substance: FLUOROURACIL
     Dates: end: 20200813
  3. ELOXATIN [Suspect]
     Active Substance: OXALIPLATIN
     Dates: end: 20200813

REACTIONS (8)
  - Dizziness [None]
  - Abdominal pain [None]
  - Asthenia [None]
  - Diarrhoea haemorrhagic [None]
  - Haemoglobin decreased [None]
  - Anaemia [None]
  - Gastric haemorrhage [None]
  - Oesophageal carcinoma [None]

NARRATIVE: CASE EVENT DATE: 20200826
